FAERS Safety Report 14953452 (Version 1)
Quarter: 2018Q2

REPORT INFORMATION
  Report Type: Spontaneous
  Country: PK (occurrence: PK)
  Receive Date: 20180530
  Receipt Date: 20180530
  Transmission Date: 20180711
  Serious: Yes (Hospitalization, Other)
  Sender: FDA-Public Use
  Company Number: PK-BAYER-2018-098734

PATIENT
  Age: 65 Year
  Sex: Female

DRUGS (1)
  1. ULTRAVIST [Suspect]
     Active Substance: IOPROMIDE
     Indication: COMPUTERISED TOMOGRAM
     Dosage: 50 ML, BID
     Route: 042
     Dates: start: 20180512, end: 20180512

REACTIONS (2)
  - Headache [None]
  - Coma scale abnormal [None]

NARRATIVE: CASE EVENT DATE: 20180512
